FAERS Safety Report 25521833 (Version 1)
Quarter: 2025Q3

REPORT INFORMATION
  Report Type: Other
  Country: US (occurrence: US)
  Receive Date: 20250706
  Receipt Date: 20250706
  Transmission Date: 20251021
  Serious: Yes (Other)
  Sender: AIRGAS
  Company Number: US-ALSI-2025000166

PATIENT
  Age: 38 Year
  Sex: Male

DRUGS (1)
  1. CARBON DIOXIDE [Suspect]
     Active Substance: CARBON DIOXIDE
     Indication: Sigmoidoscopy

REACTIONS (2)
  - Pneumoperitoneum [Recovered/Resolved]
  - Abdominal distension [Recovered/Resolved]
